FAERS Safety Report 7322640-2 (Version None)
Quarter: 2011Q1

REPORT INFORMATION
  Report Type: 
  Country: None (occurrence: None)
  Receive Date: 20110301
  Receipt Date: 20110222
  Transmission Date: 20110831
  Serious: Yes (Other)
  Sender: FDA-Public Use
  Company Number: US-PFIZER INC-2011012370

PATIENT
  Sex: Female
  Weight: 61.2 kg

DRUGS (1)
  1. PREMARIN [Suspect]
     Indication: MENOPAUSE
     Dosage: 0.625 MG, 1X/DAY
     Route: 048

REACTIONS (1)
  - BLOOD PRESSURE INCREASED [None]
